FAERS Safety Report 12637821 (Version 2)
Quarter: 2016Q3

REPORT INFORMATION
  Report Type: Spontaneous
  Country: DE (occurrence: DE)
  Receive Date: 20160809
  Receipt Date: 20160923
  Transmission Date: 20161109
  Serious: Yes (Other)
  Sender: FDA-Public Use
  Company Number: DE-JNJFOC-20160804285

PATIENT
  Age: 30 Year
  Sex: Male
  Weight: 84 kg

DRUGS (5)
  1. RISPERDAL CONSTA [Suspect]
     Active Substance: RISPERIDONE
     Indication: SCHIZOPHRENIA
     Route: 030
     Dates: start: 20160720
  2. APONAL [Concomitant]
     Active Substance: DOXEPIN HYDROCHLORIDE
     Indication: AGITATION
     Route: 065
     Dates: start: 20160805
  3. RISPERDAL [Suspect]
     Active Substance: RISPERIDONE
     Indication: SCHIZOPHRENIA
     Route: 048
     Dates: start: 201501
  4. APONAL [Concomitant]
     Active Substance: DOXEPIN HYDROCHLORIDE
     Indication: AFFECTIVE DISORDER
     Route: 065
     Dates: start: 20160805
  5. XARELTO [Concomitant]
     Active Substance: RIVAROXABAN
     Indication: VENOUS THROMBOSIS
     Route: 065
     Dates: start: 20150509

REACTIONS (4)
  - Off label use [Unknown]
  - Venous thrombosis [Recovered/Resolved]
  - Injection site mass [Recovered/Resolved]
  - Wrong technique in product usage process [Unknown]

NARRATIVE: CASE EVENT DATE: 20160720
